FAERS Safety Report 7534898-5 (Version None)
Quarter: 2011Q2

REPORT INFORMATION
  Report Type: 
  Country: None (occurrence: None)
  Receive Date: 20110609
  Receipt Date: 20081103
  Transmission Date: 20111010
  Serious: Yes (Death)
  Sender: FDA-Public Use
  Company Number: PHHY2008SI26863

PATIENT
  Sex: Male

DRUGS (4)
  1. PLAVIX [Concomitant]
     Dosage: 75 MG, UNK
  2. ASPIRIN [Concomitant]
     Dosage: 100 MG, UNK
  3. TRITACE [Concomitant]
     Dosage: 7.5 MG, UNK
  4. FLUVASTATIN SODIUM [Suspect]
     Dosage: UNK
     Route: 048

REACTIONS (1)
  - DEATH [None]
